FAERS Safety Report 22084796 (Version 4)
Quarter: 2025Q1

REPORT INFORMATION
  Report Type: Spontaneous
  Country: US (occurrence: US)
  Receive Date: 20230310
  Receipt Date: 20250220
  Transmission Date: 20250409
  Serious: Yes (Other)
  Sender: PFIZER
  Company Number: US-PFIZER INC-PV202300029844

PATIENT
  Age: 70 Year
  Sex: Female
  Weight: 65.306 kg

DRUGS (3)
  1. XELJANZ XR [Suspect]
     Active Substance: TOFACITINIB CITRATE
     Indication: Colitis ulcerative
     Dosage: 22 MG, 2X/DAY
     Route: 048
     Dates: start: 2022, end: 202302
  2. XELJANZ XR [Suspect]
     Active Substance: TOFACITINIB CITRATE
     Dosage: 11 MG, 1X/DAY
     Route: 048
     Dates: end: 20241023
  3. SULFASALAZINE [Concomitant]
     Active Substance: SULFASALAZINE
     Dates: start: 2020

REACTIONS (3)
  - Pancreatic carcinoma [Unknown]
  - Off label use [Unknown]
  - Constipation [Recovering/Resolving]

NARRATIVE: CASE EVENT DATE: 20221101
